FAERS Safety Report 4330509-0 (Version None)
Quarter: 2004Q1

REPORT INFORMATION
  Report Type: 
  Country: None (occurrence: None)
  Receive Date: 20040329
  Receipt Date: 20040312
  Transmission Date: 20041129
  Serious: Yes (Death)
  Sender: FDA-Public Use
  Company Number: JP-JNJFOC-20040303258

PATIENT
  Age: 62 Year
  Sex: Female

DRUGS (11)
  1. FENTANYL [Suspect]
     Indication: CANCER PAIN
     Dosage: 2.5 MG, 1 IN 3 DAY, TRANSDERMAL
     Route: 062
     Dates: start: 20030829, end: 20030906
  2. FENTANYL [Suspect]
     Indication: CANCER PAIN
     Dosage: 2.5 MG, 1 IN 3 DAY, TRANSDERMAL
     Route: 062
     Dates: start: 20030912
  3. IRINOTECAN HYDROCHLORIDE (IRINOTECAN HYDROCHLORIDE) [Suspect]
     Indication: GASTRIC CANCER
     Dosage: 60 MG, IN 1 DAY, INTRAVENOUS DRIP
     Route: 041
     Dates: start: 20030829, end: 20030829
  4. IRINOTECAN HYDROCHLORIDE (IRINOTECAN HYDROCHLORIDE) [Suspect]
     Indication: GASTRIC CANCER
     Dosage: 60 MG, IN 1 DAY, INTRAVENOUS DRIP
     Route: 041
     Dates: start: 20030912, end: 20030912
  5. CISPLATIN [Concomitant]
  6. GRANISETRON HYDROCHLORIDE (GRANISETRON HYDROCHLORIDE) [Concomitant]
  7. ETODOLAC [Concomitant]
  8. DOMPERIDONE (DOMPERIDONE) [Concomitant]
  9. PREDNISOLONE [Concomitant]
  10. MAGNESIUM OXIDE (MAGNESIUM OXIDE) [Concomitant]
  11. SENNOSIDE (ALL OTHER THERAPEUTIC PRODUCTS) [Concomitant]

REACTIONS (4)
  - ALANINE AMINOTRANSFERASE INCREASED [None]
  - ASPARTATE AMINOTRANSFERASE INCREASED [None]
  - GASTRIC CANCER [None]
  - MALIGNANT NEOPLASM PROGRESSION [None]
